FAERS Safety Report 5447139-X (Version None)
Quarter: 2007Q3

REPORT INFORMATION
  Report Type: 
  Country: None (occurrence: None)
  Receive Date: 20070910
  Receipt Date: 20070903
  Transmission Date: 20080115
  Serious: Yes (Life-Threatening, Hospitalization)
  Sender: FDA-Public Use
  Company Number: DK-JNJFOC-20070806528

PATIENT
  Age: 61 Year
  Sex: Male

DRUGS (3)
  1. REMICADE [Suspect]
     Route: 042
  2. REMICADE [Suspect]
     Indication: ANKYLOSING SPONDYLITIS
     Route: 042
  3. SALAZOPYRIN [Concomitant]
     Route: 048

REACTIONS (6)
  - BLOOD PRESSURE INCREASED [None]
  - BRONCHOSPASM [None]
  - INFUSION RELATED REACTION [None]
  - MUSCLE SPASMS [None]
  - PYREXIA [None]
  - TACHYCARDIA [None]
